FAERS Safety Report 13904034 (Version 2)
Quarter: 2017Q4

REPORT INFORMATION
  Report Type: Spontaneous
  Country: JP (occurrence: JP)
  Receive Date: 20170825
  Receipt Date: 20171125
  Transmission Date: 20180320
  Serious: Yes (Life-Threatening, Hospitalization)
  Sender: FDA-Public Use
  Company Number: JP-AMGEN-JPNSP2017129337

PATIENT
  Age: 70 Year
  Sex: Male
  Weight: 54 kg

DRUGS (9)
  1. CALCIUM LEVOFOLINATE [Concomitant]
     Active Substance: LEVOLEUCOVORIN CALCIUM
     Indication: COLON CANCER
     Dosage: UNK
     Route: 041
     Dates: start: 201606
  2. PANITUMUMAB [Suspect]
     Active Substance: PANITUMUMAB
     Indication: COLON CANCER
     Dosage: UNK
     Route: 041
     Dates: start: 201606
  3. PANITUMUMAB [Suspect]
     Active Substance: PANITUMUMAB
     Indication: METASTASES TO LIVER
     Dosage: 340 MG, Q2WK
     Route: 041
     Dates: start: 20160914, end: 20160914
  4. OXALIPLATIN. [Concomitant]
     Active Substance: OXALIPLATIN
     Indication: COLON CANCER
     Dosage: UNK
     Route: 041
     Dates: start: 201606
  5. FLUOROURACIL. [Suspect]
     Active Substance: FLUOROURACIL
     Indication: METASTASES TO LIVER
     Dosage: 600 MG, Q2WEEKS
     Route: 040
     Dates: start: 20160914, end: 20160914
  6. FLUOROURACIL. [Suspect]
     Active Substance: FLUOROURACIL
     Indication: COLON CANCER
     Dosage: UNK
     Route: 041
     Dates: start: 201606
  7. FLUOROURACIL. [Suspect]
     Active Substance: FLUOROURACIL
     Dosage: 3750 MG, Q2WEEKS
     Route: 041
     Dates: start: 20160914, end: 20160916
  8. CALCIUM LEVOFOLINATE [Concomitant]
     Active Substance: LEVOLEUCOVORIN CALCIUM
     Indication: METASTASES TO LIVER
     Dosage: 300 MG, Q2WK
     Route: 041
     Dates: start: 20160914, end: 20160914
  9. OXALIPLATIN. [Concomitant]
     Active Substance: OXALIPLATIN
     Indication: METASTASES TO LIVER
     Dosage: 130 MG, Q2WK
     Route: 041
     Dates: start: 20160914, end: 20160914

REACTIONS (8)
  - Decreased appetite [Unknown]
  - Dehydration [Unknown]
  - Hepatic function abnormal [Unknown]
  - Renal impairment [Unknown]
  - Muscular weakness [Unknown]
  - Vomiting [Unknown]
  - Hyperammonaemia [Recovering/Resolving]
  - Altered state of consciousness [Recovering/Resolving]

NARRATIVE: CASE EVENT DATE: 20160915
